FAERS Safety Report 12588880 (Version 1)
Quarter: 2016Q3

REPORT INFORMATION
  Report Type: Spontaneous
  Country: US (occurrence: US)
  Receive Date: 20160725
  Receipt Date: 20160725
  Transmission Date: 20161109
  Serious: No
  Sender: FDA-Public Use
  Company Number: US-JNJFOC-20140501278

PATIENT
  Sex: Female

DRUGS (7)
  1. TYLENOL PM [Suspect]
     Active Substance: ACETAMINOPHEN\DIPHENHYDRAMINE
     Indication: SLEEP DISORDER THERAPY
     Dosage: AS DIRECTED
     Route: 065
     Dates: start: 2004
  2. TYLENOL EXTRA STRENGTH [Suspect]
     Active Substance: ACETAMINOPHEN
     Indication: PAIN IN EXTREMITY
     Dosage: AS DIRECTED
     Route: 065
     Dates: start: 2004
  3. TYLENOL REGULAR STRENGTH [Suspect]
     Active Substance: ACETAMINOPHEN
     Route: 065
  4. TYLENOL EXTRA STRENGTH [Suspect]
     Active Substance: ACETAMINOPHEN
     Indication: HEADACHE
     Dosage: AS DIRECTED
     Route: 065
     Dates: start: 2004
  5. NORCO [Concomitant]
     Active Substance: ACETAMINOPHEN\HYDROCODONE BITARTRATE
     Indication: ROAD TRAFFIC ACCIDENT
  6. TYLENOL PM [Suspect]
     Active Substance: ACETAMINOPHEN\DIPHENHYDRAMINE
     Indication: PAIN
     Dosage: AS DIRECTED
     Route: 065
     Dates: start: 2004
  7. TYLENOL REGULAR STRENGTH [Suspect]
     Active Substance: ACETAMINOPHEN
     Indication: PAIN
     Dosage: AS DIRECTED
     Route: 065
     Dates: start: 20040814, end: 20040913

REACTIONS (1)
  - Liver disorder [Unknown]
